FAERS Safety Report 23664661 (Version 2)
Quarter: 2024Q4

REPORT INFORMATION
  Report Type: Spontaneous
  Country: US (occurrence: US)
  Receive Date: 20240322
  Receipt Date: 20241010
  Transmission Date: 20250115
  Serious: No
  Sender: ASCENDIS PHARMA
  Company Number: US-ASCENDIS PHARMA-2024US004538

PATIENT

DRUGS (1)
  1. SKYTROFA [Suspect]
     Active Substance: LONAPEGSOMATROPIN-TCGD
     Indication: Growth hormone deficiency
     Dosage: 6.3 UNK, UNK
     Route: 065
     Dates: start: 20220809

REACTIONS (4)
  - Mood swings [Unknown]
  - Emotional disorder [Not Recovered/Not Resolved]
  - Product dispensing error [Unknown]
  - Tic [Not Recovered/Not Resolved]
